FAERS Safety Report 9605109 (Version 2)
Quarter: 2013Q4

REPORT INFORMATION
  Report Type: Spontaneous
  Country: US (occurrence: US)
  Receive Date: 20131008
  Receipt Date: 20131120
  Transmission Date: 20140711
  Serious: Yes (Hospitalization, Other)
  Sender: FDA-Public Use
  Company Number: US-ASTRAZENECA-2013SE72726

PATIENT
  Age: 45 Year
  Sex: Male

DRUGS (1)
  1. BRILINTA [Suspect]
     Indication: ACUTE CORONARY SYNDROME
     Route: 048

REACTIONS (5)
  - Blindness [Recovered/Resolved]
  - Hypotension [Unknown]
  - Pneumonia aspiration [Unknown]
  - Confusional state [Recovering/Resolving]
  - VIth nerve paralysis [Recovered/Resolved]
